FAERS Safety Report 12213637 (Version 1)
Quarter: 2016Q1

REPORT INFORMATION
  Report Type: Spontaneous
  Country: JP (occurrence: JP)
  Receive Date: 20160328
  Receipt Date: 20160328
  Transmission Date: 20160526
  Serious: Yes (Death, Other)
  Sender: FDA-Public Use
  Company Number: JP-GUERBET LLC-1049757

PATIENT
  Age: 79 Year
  Sex: Female

DRUGS (2)
  1. LIPIODOL [Suspect]
     Active Substance: ETHIODIZED OIL
     Indication: REGIONAL CHEMOTHERAPY
     Route: 012
  2. ADRIAMYCIN [Concomitant]
     Active Substance: DOXORUBICIN HYDROCHLORIDE

REACTIONS (8)
  - Hepatic infarction [Unknown]
  - Sepsis [Fatal]
  - Hepatic failure [Unknown]
  - Liver abscess [Unknown]
  - Biloma [Unknown]
  - Hepatic atrophy [Unknown]
  - Off label use [Unknown]
  - Jaundice [Unknown]
